FAERS Safety Report 9224654 (Version 2)
Quarter: 2013Q2

REPORT INFORMATION
  Report Type: Spontaneous
  Country: US (occurrence: US)
  Receive Date: 20130411
  Receipt Date: 20130624
  Transmission Date: 20140414
  Serious: No
  Sender: FDA-Public Use
  Company Number: US-B.I. PHARMACEUTICALS,INC./RIDGEFIELD-2013-BI-09299BP

PATIENT
  Age: 61 Year
  Sex: Female

DRUGS (3)
  1. MOBIC [Suspect]
     Indication: OSTEOARTHRITIS
  2. CELEBREX [Concomitant]
     Indication: OSTEOARTHRITIS
     Dosage: 400 MG
  3. TRAMADOL [Concomitant]

REACTIONS (1)
  - Drug ineffective [Unknown]
